FAERS Safety Report 9001657 (Version 1)
Quarter: 2013Q1

REPORT INFORMATION
  Report Type: Spontaneous
  Country: US (occurrence: US)
  Receive Date: 20130107
  Receipt Date: 20130107
  Transmission Date: 20140127
  Serious: Yes (Hospitalization)
  Sender: FDA-Public Use
  Company Number: US-009507513-1301USA001885

PATIENT
  Age: 60 Year
  Sex: Female

DRUGS (3)
  1. SINGULAIR [Suspect]
     Dosage: 1 DF DAILY
     Route: 048
  2. ESPERAL [Suspect]
     Dosage: 1 DF DAILY
     Route: 048
  3. MOPRAL [Suspect]
     Dosage: 1 DF DAILY
     Route: 048

REACTIONS (5)
  - Metabolic encephalopathy [Unknown]
  - Gait disturbance [Unknown]
  - Drug interaction [Unknown]
  - Confusional state [Unknown]
  - Balance disorder [Unknown]
